FAERS Safety Report 6646681-3 (Version None)
Quarter: 2010Q1

REPORT INFORMATION
  Report Type: 
  Country: None (occurrence: None)
  Receive Date: 20100322
  Receipt Date: 20100322
  Transmission Date: 20100710
  Serious: Yes (Hospitalization)
  Sender: FDA-Public Use
  Company Number: None

PATIENT
  Age: 56 Year
  Sex: Male
  Weight: 88 kg

DRUGS (6)
  1. DRONEDARONE 10 MG (RECEIVED 60 MG PO LOAD, THEN 10 MG DAILY SANOFI AVE [Suspect]
     Indication: ACUTE CORONARY SYNDROME
     Dosage: 60 MG ONCE ORAL 10 MG QDAY ORAL
     Route: 048
     Dates: start: 20100121, end: 20100128
  2. DRONEDARONE 10 MG (RECEIVED 60 MG PO LOAD, THEN 10 MG DAILY SANOFI AVE [Suspect]
     Indication: ELECTROCARDIOGRAM ST SEGMENT ELEVATION
     Dosage: 60 MG ONCE ORAL 10 MG QDAY ORAL
     Route: 048
     Dates: start: 20100121, end: 20100128
  3. DRONEDARONE 10 MG (RECEIVED 60 MG PO LOAD, THEN 10 MG DAILY SANOFI AVE [Suspect]
     Indication: MYOCARDIAL INFARCTION
     Dosage: 60 MG ONCE ORAL 10 MG QDAY ORAL
     Route: 048
     Dates: start: 20100121, end: 20100128
  4. DRONEDARONE 10 MG (RECEIVED 60 MG PO LOAD, THEN 10 MG DAILY SANOFI AVE [Suspect]
     Indication: PERCUTANEOUS CORONARY INTERVENTION
     Dosage: 60 MG ONCE ORAL 10 MG QDAY ORAL
     Route: 048
     Dates: start: 20100121, end: 20100128
  5. ASPIRIN [Concomitant]
  6. BILVALRUDIN [Concomitant]

REACTIONS (3)
  - ANAEMIA [None]
  - EPISTAXIS [None]
  - RECTAL HAEMORRHAGE [None]
